FAERS Safety Report 8153651-5 (Version None)
Quarter: 2012Q1

REPORT INFORMATION
  Report Type: 
  Country: None (occurrence: None)
  Receive Date: 20120221
  Receipt Date: 20120209
  Transmission Date: 20120608
  Serious: Yes (Hospitalization)
  Sender: FDA-Public Use
  Company Number: ES-JNJFOC-20120204143

PATIENT
  Age: 68 Year
  Sex: Female

DRUGS (12)
  1. PALEXIA RETARD [Suspect]
     Indication: ARTHRALGIA
     Route: 048
     Dates: start: 20120101, end: 20120128
  2. PALEXIA RETARD [Suspect]
     Route: 048
     Dates: start: 20120101, end: 20120101
  3. DORZOLAMIDE [Concomitant]
     Indication: GLAUCOMA
     Route: 047
  4. CYMBALTA [Concomitant]
     Indication: PRODUCT USED FOR UNKNOWN INDICATION
     Route: 065
     Dates: end: 20120101
  5. CYMBALTA [Concomitant]
     Route: 065
  6. LEVOTHYROXINE SODIUM [Concomitant]
     Indication: HYPOTHYROIDISM
     Route: 065
  7. PALEXIA RETARD [Suspect]
     Route: 048
     Dates: start: 20111201
  8. LORAZEPAM [Concomitant]
     Route: 048
     Dates: start: 20120130
  9. LORAZEPAM [Concomitant]
     Indication: PRODUCT USED FOR UNKNOWN INDICATION
     Route: 048
     Dates: start: 20110101, end: 20120128
  10. ETORICOXIB [Concomitant]
     Indication: PRODUCT USED FOR UNKNOWN INDICATION
     Route: 065
     Dates: end: 20120101
  11. PREGABALIN [Concomitant]
     Indication: PRODUCT USED FOR UNKNOWN INDICATION
     Route: 065
     Dates: start: 20110101, end: 20120128
  12. CYMBALTA [Concomitant]
     Route: 065
     Dates: start: 20120101, end: 20120128

REACTIONS (7)
  - DISORIENTATION [None]
  - FEELING OF BODY TEMPERATURE CHANGE [None]
  - HALLUCINATIONS, MIXED [None]
  - CONFUSIONAL STATE [None]
  - ANXIETY [None]
  - DYSURIA [None]
  - NIGHTMARE [None]
